FAERS Safety Report 7778042-8 (Version None)
Quarter: 2011Q3

REPORT INFORMATION
  Report Type: 
  Country: None (occurrence: None)
  Receive Date: 20110926
  Receipt Date: 20110916
  Transmission Date: 20111222
  Serious: Yes (Hospitalization, Other)
  Sender: FDA-Public Use
  Company Number: JP-SHIRE-ALL1-2011-03537

PATIENT
  Age: 82 Year
  Sex: Male

DRUGS (8)
  1. ANTIPYRETIC ANALGESICS [Concomitant]
     Indication: LUMBAR VERTEBRAL FRACTURE
     Dosage: UNK, UNKNOWN
     Route: 065
  2. FOSRENOL [Suspect]
     Indication: HYPERPHOSPHATAEMIA
     Dosage: 750 MG,OWN OTHER(IMMEDIATELY AFTER MEALS)
     Route: 048
     Dates: start: 20091006
  3. ALFAROL [Concomitant]
     Indication: PRODUCT USED FOR UNKNOWN INDICATION
     Dosage: 0.5 ?G, UNKNOWN
     Route: 048
     Dates: start: 20080724
  4. CALCIUM CARBONATE [Concomitant]
     Indication: HYPERPHOSPHATAEMIA
     Dosage: 3 G, UNKNOWN
     Route: 048
  5. ATARAX-P                           /00058402/ [Concomitant]
     Indication: PRURITUS
     Dosage: 25 MG, UNKNOWN
     Route: 048
  6. ALLOPURINOL [Concomitant]
     Indication: PRODUCT USED FOR UNKNOWN INDICATION
     Dosage: 100 MG, UNKNOWN
     Route: 048
  7. VASOLAN                            /00014302/ [Concomitant]
     Indication: SUPRAVENTRICULAR TACHYCARDIA
     Dosage: 80 MG, UNKNOWN
     Route: 048
  8. LASIX [Concomitant]
     Indication: PRODUCT USED FOR UNKNOWN INDICATION
     Dosage: 40 MG, UNKNOWN
     Route: 048

REACTIONS (3)
  - FALL [None]
  - LARGE INTESTINE PERFORATION [None]
  - COMPRESSION FRACTURE [None]
